FAERS Safety Report 5225462-1 (Version None)
Quarter: 2007Q1

REPORT INFORMATION
  Report Type: 
  Country: None (occurrence: None)
  Receive Date: 20070131
  Receipt Date: 20070122
  Transmission Date: 20070707
  Serious: Yes (Life-Threatening, Hospitalization, Other)
  Sender: FDA-Public Use
  Company Number: BR-PFIZER INC-2004028759

PATIENT
  Sex: Female

DRUGS (4)
  1. SILDENAFIL (PAH) [Suspect]
     Indication: PULMONARY HYPERTENSION
     Route: 048
  2. DILTIAZEM [Concomitant]
     Route: 048
  3. FUROSEMIDE [Concomitant]
  4. DIGOXIN [Concomitant]
     Route: 048

REACTIONS (5)
  - ASTHENIA [None]
  - DYSPNOEA [None]
  - FATIGUE [None]
  - PAIN [None]
  - PULMONARY ARTERIAL PRESSURE INCREASED [None]
